FAERS Safety Report 17417256 (Version 1)
Quarter: 2020Q1

REPORT INFORMATION
  Report Type: Spontaneous
  Country: US (occurrence: US)
  Receive Date: 20200214
  Receipt Date: 20200214
  Transmission Date: 20200409
  Serious: Yes (Congenital Anomaly)
  Sender: FDA-Public Use
  Company Number: US-009507513-2002USA004977

PATIENT
  Sex: Male
  Weight: 3.47 kg

DRUGS (15)
  1. NAPROXEN. [Suspect]
     Active Substance: NAPROXEN
     Dosage: 500 MILLIGRAM, 1 DOSAGE FORM EACH DAY
     Route: 064
     Dates: start: 20190506
  2. REGLAN [Suspect]
     Active Substance: METOCLOPRAMIDE HYDROCHLORIDE
     Dosage: 10 MILLIGRAM
     Route: 064
     Dates: start: 20190829
  3. DIPHENHYDRAMINE. [Suspect]
     Active Substance: DIPHENHYDRAMINE
     Dosage: 25 MILLIGRAM, 1 DOSAGE FORM
     Route: 064
     Dates: start: 20190508
  4. VALACYCLOVIR HYDROCHLORIDE. [Suspect]
     Active Substance: VALACYCLOVIR HYDROCHLORIDE
     Dosage: 500 MILLIGRAM, 22 DOSES
     Route: 064
     Dates: start: 20191230, end: 20200122
  5. ACETAMINOPHEN (+) BUTALBITAL (+) CAFFEINE [Suspect]
     Active Substance: ACETAMINOPHEN\BUTALBITAL\CAFFEINE
     Dosage: STRENGTH: 50.25.40 (UNITS NOT PROVIDED)
     Route: 064
     Dates: start: 201911
  6. MAXALT [Suspect]
     Active Substance: RIZATRIPTAN BENZOATE
     Dosage: 5 MILLIGRAM (1 TABLET)
     Route: 064
     Dates: start: 20190430
  7. DIPHENHYDRAMINE. [Suspect]
     Active Substance: DIPHENHYDRAMINE
     Dosage: 25 MILLIGRAM, 1 DOSAGE FORM
     Route: 064
     Dates: start: 20190506
  8. PEPTO-BISMOL [Suspect]
     Active Substance: BISMUTH SUBSALICYLATE
     Dosage: 262 MILLIGRAM X 2
     Route: 064
     Dates: start: 20190501
  9. NAPROXEN. [Suspect]
     Active Substance: NAPROXEN
     Dosage: 500 MILLIGRAM, 1 DOSAGE FORM EACH DAY
     Route: 064
     Dates: start: 20190419
  10. ACETAMINOPHEN. [Suspect]
     Active Substance: ACETAMINOPHEN
     Dosage: 500 MILLIGRAM, 1 DOSE
     Route: 064
     Dates: start: 20190501
  11. MAXALT [Suspect]
     Active Substance: RIZATRIPTAN BENZOATE
     Dosage: 5 MILLIGRAM (1 TABLET)
     Route: 064
     Dates: start: 20190507
  12. VITAMINS (UNSPECIFIED) [Suspect]
     Active Substance: VITAMINS
     Dosage: UNK
     Route: 064
  13. NAPROXEN. [Suspect]
     Active Substance: NAPROXEN
     Dosage: 500 MILLIGRAM, 1 DOSAGE FORM EACH DAY
     Route: 064
     Dates: start: 20190427
  14. XANAX [Suspect]
     Active Substance: ALPRAZOLAM
     Dosage: 0.5 MILLIGRAM
     Route: 064
     Dates: start: 20190430
  15. XANAX [Suspect]
     Active Substance: ALPRAZOLAM
     Dosage: 0.5 MILLIGRAM
     Route: 064
     Dates: start: 20190502

REACTIONS (2)
  - Foetal exposure during pregnancy [Unknown]
  - Foetal heart rate abnormal [Unknown]
